FAERS Safety Report 4463899-9 (Version None)
Quarter: 2004Q3

REPORT INFORMATION
  Report Type: 
  Country: None (occurrence: None)
  Receive Date: 20040929
  Receipt Date: 20040916
  Transmission Date: 20050211
  Serious: Yes (Death)
  Sender: FDA-Public Use
  Company Number: 2004060380

PATIENT
  Age: 45 Year
  Sex: Female
  Weight: 65 kg

DRUGS (7)
  1. NORVASC [Suspect]
     Indication: HYPERTENSION
     Dosage: 1.25 MG (1 D), ORAL
     Route: 048
     Dates: start: 20030813
  2. INDOMETHACIN [Concomitant]
  3. SODIUM GUALENATE (SODIUM GUALENATE) [Concomitant]
  4. FLUNITRAZEPAM(FLUNITRAZEPAM) [Concomitant]
  5. ETIZOLAM (ETIZOLAM) [Concomitant]
  6. IMIPRAMINE [Concomitant]
  7. ALL OTHER THERAPEUTIC PRODUCT (ALL OTHER THERAPETUTIC PRODUCTS) [Suspect]

REACTIONS (8)
  - BLOOD PRESSURE SYSTOLIC INCREASED [None]
  - CARDIAC ARREST [None]
  - CONVULSION [None]
  - DIZZINESS [None]
  - DYSPNOEA [None]
  - ELECTROCARDIOGRAM QT PROLONGED [None]
  - HEADACHE [None]
  - TREATMENT NONCOMPLIANCE [None]
